FAERS Safety Report 16299179 (Version 1)
Quarter: 2019Q2

REPORT INFORMATION
  Report Type: Spontaneous
  Country: US (occurrence: US)
  Receive Date: 20190510
  Receipt Date: 20190510
  Transmission Date: 20190711
  Serious: Yes (Hospitalization, Other)
  Sender: FDA-Public Use
  Company Number: US-BAYER-2019-091810

PATIENT
  Age: 58 Year
  Sex: Female

DRUGS (1)
  1. BETASERON [Suspect]
     Active Substance: INTERFERON BETA-1B
     Dosage: 0.3 MG
     Dates: start: 20190125

REACTIONS (4)
  - Blood potassium decreased [None]
  - Nausea [None]
  - Multiple sclerosis relapse [None]
  - Vomiting [None]

NARRATIVE: CASE EVENT DATE: 20190322
